FAERS Safety Report 8623354-9 (Version None)
Quarter: 2012Q3

REPORT INFORMATION
  Report Type: 
  Country: None (occurrence: None)
  Receive Date: 20120827
  Receipt Date: 20120820
  Transmission Date: 20120928
  Serious: Yes (Hospitalization)
  Sender: FDA-Public Use
  Company Number: JP-JNJFOC-20111108758

PATIENT
  Sex: Male
  Weight: 50 kg

DRUGS (7)
  1. REMICADE [Suspect]
     Route: 042
     Dates: start: 20091122
  2. ELENTAL [Concomitant]
     Indication: CROHN'S DISEASE
     Dosage: 80-160GX3/DAY
     Route: 048
     Dates: start: 20091011, end: 20120108
  3. PROTECADIN [Concomitant]
     Indication: DUODENAL ULCER
     Route: 048
     Dates: start: 20091102
  4. PENTASA [Concomitant]
     Indication: CROHN'S DISEASE
     Route: 048
     Dates: start: 20000927
  5. REMICADE [Suspect]
     Indication: CROHN'S DISEASE
     Dosage: 13TH DOSE
     Route: 042
     Dates: start: 20110807
  6. PREDNISOLONE [Suspect]
     Indication: CROHN'S DISEASE
     Route: 048
     Dates: start: 20091102
  7. GASLON [Concomitant]
     Indication: DUODENAL ULCER
     Route: 048
     Dates: start: 20090816

REACTIONS (2)
  - PLEURAL EFFUSION [None]
  - PULMONARY TUBERCULOSIS [None]
